FAERS Safety Report 5306434-5 (Version None)
Quarter: 2007Q2

REPORT INFORMATION
  Report Type: 
  Country: None (occurrence: None)
  Receive Date: 20070424
  Receipt Date: 20070419
  Transmission Date: 20071010
  Serious: Yes (Hospitalization)
  Sender: FDA-Public Use
  Company Number: FR-MERCK-0704FRA00056

PATIENT
  Age: 81 Year
  Sex: Female

DRUGS (4)
  1. ZOCOR [Suspect]
     Indication: HYPERCHOLESTEROLAEMIA
     Route: 048
  2. PERINDOPRIL [Suspect]
     Route: 048
  3. AMIODARONE HYDROCHLORIDE [Suspect]
     Route: 048
  4. FUROSEMIDE [Suspect]
     Route: 048

REACTIONS (2)
  - FALL [None]
  - MALAISE [None]
